FAERS Safety Report 10772440 (Version 1)
Quarter: 2015Q1

REPORT INFORMATION
  Report Type: Report from Study
  Country: CA (occurrence: CA)
  Receive Date: 20150207
  Receipt Date: 20150207
  Transmission Date: 20150721
  Serious: Yes (Death, Hospitalization)
  Sender: FDA-Public Use
  Company Number: CA-JNJFOC-20150201621

PATIENT
  Age: 38 Year
  Sex: Female

DRUGS (2)
  1. ACETAMINOPHEN. [Suspect]
     Active Substance: ACETAMINOPHEN
     Route: 048
  2. ACETAMINOPHEN. [Suspect]
     Active Substance: ACETAMINOPHEN
     Indication: PRODUCT USED FOR UNKNOWN INDICATION
     Route: 048
     Dates: start: 19921223

REACTIONS (12)
  - Empyema [Fatal]
  - Acute kidney injury [Fatal]
  - Bacterial pericarditis [Fatal]
  - Hyponatraemia [Fatal]
  - Overdose [Fatal]
  - Thrombocytopenia [Fatal]
  - Hypomagnesaemia [Fatal]
  - Staphylococcal sepsis [Fatal]
  - Systemic candida [Fatal]
  - Brain oedema [Fatal]
  - Hypoprothrombinaemia [Fatal]
  - Acute hepatic failure [Fatal]
